FAERS Safety Report 5905191-9 (Version None)
Quarter: 2008Q4

REPORT INFORMATION
  Report Type: 
  Country: None (occurrence: None)
  Receive Date: 20081001
  Receipt Date: 20080923
  Transmission Date: 20090506
  Serious: Yes (Other)
  Sender: FDA-Public Use
  Company Number: US-BAYER-US-2007-029358

PATIENT
  Sex: Male

DRUGS (2)
  1. MAGNEVIST [Suspect]
     Indication: NUCLEAR MAGNETIC RESONANCE IMAGING
     Dosage: TOTAL DAILY DOSE: 40 ML  UNIT DOSE: 40 ML
     Route: 042
     Dates: start: 20060822, end: 20060822
  2. MAGNEVIST [Suspect]
     Dosage: TOTAL DAILY DOSE: 30 ML  UNIT DOSE: 30 ML
     Route: 042
     Dates: start: 20060824, end: 20060824

REACTIONS (6)
  - BACK PAIN [None]
  - JOINT CONTRACTURE [None]
  - MUSCLE CONTRACTURE [None]
  - NEPHROGENIC SYSTEMIC FIBROSIS [None]
  - PAIN IN EXTREMITY [None]
  - SKIN HYPERTROPHY [None]
